FAERS Safety Report 21964210 (Version 1)
Quarter: 2023Q1

REPORT INFORMATION
  Report Type: Report from Study
  Country: CN (occurrence: CN)
  Receive Date: 20230207
  Receipt Date: 20230207
  Transmission Date: 20230417
  Serious: Yes (Hospitalization, Disabling)
  Sender: FDA-Public Use
  Company Number: CN-002147023-NVSC2023CN026736

PATIENT
  Age: 68 Year
  Sex: Male
  Weight: 71.5 kg

DRUGS (11)
  1. AMLODIPINE BESYLATE [Suspect]
     Active Substance: AMLODIPINE BESYLATE
     Indication: Hypertension
     Dosage: UNK
     Route: 065
     Dates: start: 2021
  2. INCLISIRAN [Suspect]
     Active Substance: INCLISIRAN
     Indication: Arteriosclerosis
     Dosage: CODE NOT BROKEN
     Route: 058
     Dates: start: 20210518
  3. INVESTIGATIONAL PRODUCT [Suspect]
     Active Substance: INVESTIGATIONAL PRODUCT
     Indication: Arteriosclerosis
     Dosage: CODE NOT BROKEN
     Route: 058
     Dates: start: 20210518
  4. PLACEBO [Suspect]
     Active Substance: UNSPECIFIED INGREDIENT
     Indication: Arteriosclerosis
     Dosage: CODE NOT BROKEN
     Route: 058
     Dates: start: 20210518
  5. INCLISIRAN [Suspect]
     Active Substance: INCLISIRAN
     Indication: Arteriosclerosis
     Dosage: 1 SYRINGE
     Route: 058
     Dates: start: 20220812
  6. EZETIMIBE [Suspect]
     Active Substance: EZETIMIBE
     Indication: Hyperlipidaemia
     Dosage: UNK
     Route: 065
     Dates: start: 2016
  7. GEMFIBROZIL [Concomitant]
     Active Substance: GEMFIBROZIL
     Indication: Hyperlipidaemia
     Dosage: UNK
     Route: 065
     Dates: start: 2019
  8. ASPIRIN [Concomitant]
     Active Substance: ASPIRIN
     Indication: Coronary artery disease
     Dosage: UNK
     Route: 065
     Dates: start: 20140515
  9. METOPROLOL SUCCINATE [Concomitant]
     Active Substance: METOPROLOL SUCCINATE
     Indication: Coronary artery disease
     Dosage: UNK
     Route: 065
     Dates: start: 2021
  10. TRIMETAZIDINE DIHYDROCHLORIDE [Concomitant]
     Active Substance: TRIMETAZIDINE DIHYDROCHLORIDE
     Indication: Coronary artery disease
     Dosage: UNK
     Route: 065
     Dates: start: 2021
  11. GLYBURIDE [Concomitant]
     Active Substance: GLYBURIDE
     Indication: Hyperglycaemia
     Dosage: UNK
     Route: 065
     Dates: start: 2018

REACTIONS (1)
  - Rectal cancer [Not Recovered/Not Resolved]

NARRATIVE: CASE EVENT DATE: 20221120
